FAERS Safety Report 4526934-5 (Version None)
Quarter: 2004Q4

REPORT INFORMATION
  Report Type: 
  Country: None (occurrence: None)
  Receive Date: 20041105
  Receipt Date: 20040729
  Transmission Date: 20050328
  Serious: No
  Sender: FDA-Public Use
  Company Number: 2004USFACT00003

PATIENT
  Age: 61 Year
  Sex: Female
  Weight: 109.3 kg

DRUGS (5)
  1. FACTIVE [Suspect]
     Indication: RESPIRATORY TRACT INFECTION BACTERIAL
     Dosage: 320.00 MG, QD, ORAL
     Route: 048
     Dates: start: 20040723, end: 20040724
  2. LITHIUM [Concomitant]
  3. WELLBUTRIN [Concomitant]
  4. PAXIL [Concomitant]
  5. HYZAAR [Concomitant]

REACTIONS (6)
  - ASTHENIA [None]
  - DIZZINESS [None]
  - DYSPNOEA [None]
  - FLUSHING [None]
  - URTICARIA [None]
  - VOMITING [None]
